FAERS Safety Report 5234517-7 (Version None)
Quarter: 2007Q1

REPORT INFORMATION
  Report Type: 
  Country: None (occurrence: None)
  Receive Date: 20070208
  Receipt Date: 20070208
  Transmission Date: 20070707
  Serious: Yes (Hospitalization)
  Sender: FDA-Public Use
  Company Number: None

PATIENT
  Age: 58 Year
  Sex: Female
  Weight: 74.1 kg

DRUGS (8)
  1. CARBOPLATIN [Suspect]
     Indication: BREAST CANCER METASTATIC
     Dosage: AUC= 2 IV BOLUS 3 OUT OF 4 WEEKS INTRAVENOUS
     Route: 040
     Dates: start: 20060915, end: 20070119
  2. CETUXIMAB [Suspect]
     Indication: BREAST CANCER METASTATIC
     Dosage: 250 MG/M2 IV BOLUS WEEKLY INTRAVENOUS
     Route: 040
     Dates: start: 20060721, end: 20070119
  3. PULMICORT (BUDESONIDE ORAL INHALER) [Concomitant]
  4. AMITRIPTYLINE HCL [Concomitant]
  5. VERAPAMIL [Concomitant]
  6. FLEXERIL [Concomitant]
  7. ATROVENT [Concomitant]
  8. COMPAZINE (PROCHLORPERAZINE MALEATE) [Concomitant]

REACTIONS (2)
  - PEAU D'ORANGE [None]
  - STAPHYLOCOCCAL INFECTION [None]
